FAERS Safety Report 13695571 (Version 6)
Quarter: 2019Q1

REPORT INFORMATION
  Report Type: Spontaneous
  Country: US (occurrence: US)
  Receive Date: 20170627
  Receipt Date: 20190308
  Transmission Date: 20190417
  Serious: Yes (Hospitalization, Other)
  Sender: FDA-Public Use
  Company Number: US-DSJP-DSU-2017-119466

PATIENT

DRUGS (1)
  1. BENICAR HCT [Suspect]
     Active Substance: HYDROCHLOROTHIAZIDE\OLMESARTAN MEDOXOMIL
     Indication: PRODUCT USED FOR UNKNOWN INDICATION
     Dosage: 20/12.5 MG, QD
     Route: 048

REACTIONS (11)
  - Coeliac disease [Unknown]
  - Gastrointestinal haemorrhage [Unknown]
  - Diverticulum intestinal [Unknown]
  - Polyp [Unknown]
  - Cholecystitis [Recovered/Resolved]
  - Liver function test abnormal [Recovered/Resolved]
  - Hiatus hernia [Unknown]
  - Haemorrhoids [Unknown]
  - Dizziness [Recovering/Resolving]
  - Constipation [Unknown]
  - Sprue-like enteropathy [Recovering/Resolving]

NARRATIVE: CASE EVENT DATE: 20100806
